FAERS Safety Report 20052131 (Version 1)
Quarter: 2021Q4

REPORT INFORMATION
  Report Type: Spontaneous
  Country: IT (occurrence: IT)
  Receive Date: 20211110
  Receipt Date: 20211110
  Transmission Date: 20220303
  Serious: Yes (Life-Threatening, Other)
  Sender: FDA-Public Use
  Company Number: IT-CELLTRION INC.-2021IT009392

PATIENT

DRUGS (50)
  1. RITUXIMAB [Suspect]
     Active Substance: RITUXIMAB
     Indication: Diffuse large B-cell lymphoma
     Dosage: UNK
     Route: 065
  2. RITUXIMAB [Suspect]
     Active Substance: RITUXIMAB
     Indication: B-cell lymphoma
     Dosage: AFTER 6 CYCLES OF CHOP (CYCLOPHOSPHAMIDE, VINCRISTINE, DOXORUBICIN AND PREDNISONE) THERAPY AND 8 ADM
  3. RITUXIMAB [Suspect]
     Active Substance: RITUXIMAB
     Indication: Chemotherapy
     Dosage: AFTER 6 CYCLES OF CHOP (CYCLOPHOSPHAMIDE, VINCRISTINE, DOXORUBICIN AND PREDNISONE) THERAPY AND 8 ADM
  4. RITUXIMAB [Suspect]
     Active Substance: RITUXIMAB
     Dosage: AFTER 6 CYCLES OF CHOP (CYCLOPHOSPHAMIDE, VINCRISTINE, DOXORUBICIN AND PREDNISONE) THERAPY AND 8 ADM
  5. RITUXIMAB [Suspect]
     Active Substance: RITUXIMAB
     Dosage: AFTER 6 CYCLES OF CHOP (CYCLOPHOSPHAMIDE, VINCRISTINE, DOXORUBICIN AND PREDNISONE) THERAPY AND 8 ADM
  6. RITUXIMAB [Suspect]
     Active Substance: RITUXIMAB
     Dosage: AFTER 6 CYCLES OF CHOP (CYCLOPHOSPHAMIDE, VINCRISTINE, DOXORUBICIN AND PREDNISONE) THERAPY AND 8 ADM
  7. RITUXIMAB [Suspect]
     Active Substance: RITUXIMAB
     Dosage: AFTER 6 CYCLES OF CHOP (CYCLOPHOSPHAMIDE, VINCRISTINE, DOXORUBICIN AND PREDNISONE) THERAPY AND 8 ADM
  8. RITUXIMAB [Suspect]
     Active Substance: RITUXIMAB
     Dosage: AFTER 6 CYCLES OF CHOP (CYCLOPHOSPHAMIDE, VINCRISTINE, DOXORUBICIN AND PREDNISONE) THERAPY AND 8 ADM
  9. RITUXIMAB [Suspect]
     Active Substance: RITUXIMAB
     Dosage: AFTER 6 CYCLES OF CHOP (CYCLOPHOSPHAMIDE, VINCRISTINE, DOXORUBICIN AND PREDNISONE) THERAPY AND 8 ADM
  10. CYCLOPHOSPHAMIDE [Suspect]
     Active Substance: CYCLOPHOSPHAMIDE
     Indication: Diffuse large B-cell lymphoma
     Dosage: UNK
     Route: 065
  11. CYCLOPHOSPHAMIDE [Suspect]
     Active Substance: CYCLOPHOSPHAMIDE
     Dosage: AFTER 6 CYCLES OF CHOP (CYCLOPHOSPHAMIDE, VINCRISTINE, DOXORUBICIN AND PREDNISONE) THERAPY AND 8 ADM
  12. CYCLOPHOSPHAMIDE [Suspect]
     Active Substance: CYCLOPHOSPHAMIDE
     Dosage: AFTER 6 CYCLES OF CHOP (CYCLOPHOSPHAMIDE, VINCRISTINE, DOXORUBICIN AND PREDNISONE) THERAPY AND 8 ADM
  13. CYCLOPHOSPHAMIDE [Suspect]
     Active Substance: CYCLOPHOSPHAMIDE
     Dosage: AFTER 6 CYCLES OF CHOP (CYCLOPHOSPHAMIDE, VINCRISTINE, DOXORUBICIN AND PREDNISONE) THERAPY AND 8 ADM
  14. CYCLOPHOSPHAMIDE [Suspect]
     Active Substance: CYCLOPHOSPHAMIDE
     Dosage: AFTER 6 CYCLES OF CHOP (CYCLOPHOSPHAMIDE, VINCRISTINE, DOXORUBICIN AND PREDNISONE) THERAPY AND 8 ADM
  15. CYCLOPHOSPHAMIDE [Suspect]
     Active Substance: CYCLOPHOSPHAMIDE
     Dosage: AFTER 6 CYCLES OF CHOP (CYCLOPHOSPHAMIDE, VINCRISTINE, DOXORUBICIN AND PREDNISONE) THERAPY AND 8 ADM
  16. CYCLOPHOSPHAMIDE [Suspect]
     Active Substance: CYCLOPHOSPHAMIDE
     Dosage: AFTER 6 CYCLES OF CHOP (CYCLOPHOSPHAMIDE, VINCRISTINE, DOXORUBICIN AND PREDNISONE) THERAPY AND 8 ADM
  17. VINCRISTINE [Suspect]
     Active Substance: VINCRISTINE
     Indication: Diffuse large B-cell lymphoma
     Dosage: UNK
     Route: 065
  18. VINCRISTINE [Suspect]
     Active Substance: VINCRISTINE
     Dosage: AFTER 6 CYCLES OF CHOP (CYCLOPHOSPHAMIDE, VINCRISTINE, DOXORUBICIN AND PREDNISONE) THERAPY AND 8 ADM
  19. VINCRISTINE [Suspect]
     Active Substance: VINCRISTINE
     Dosage: AFTER 6 CYCLES OF CHOP (CYCLOPHOSPHAMIDE, VINCRISTINE, DOXORUBICIN AND PREDNISONE) THERAPY AND 8 ADM
  20. VINCRISTINE [Suspect]
     Active Substance: VINCRISTINE
     Dosage: AFTER 6 CYCLES OF CHOP (CYCLOPHOSPHAMIDE, VINCRISTINE, DOXORUBICIN AND PREDNISONE) THERAPY AND 8 ADM
  21. VINCRISTINE [Suspect]
     Active Substance: VINCRISTINE
     Dosage: AFTER 6 CYCLES OF CHOP (CYCLOPHOSPHAMIDE, VINCRISTINE, DOXORUBICIN AND PREDNISONE) THERAPY AND 8 ADM
  22. VINCRISTINE [Suspect]
     Active Substance: VINCRISTINE
     Dosage: AFTER 6 CYCLES OF CHOP (CYCLOPHOSPHAMIDE, VINCRISTINE, DOXORUBICIN AND PREDNISONE) THERAPY AND 8 ADM
  23. VINCRISTINE [Suspect]
     Active Substance: VINCRISTINE
     Dosage: AFTER 6 CYCLES OF CHOP (CYCLOPHOSPHAMIDE, VINCRISTINE, DOXORUBICIN AND PREDNISONE) THERAPY AND 8 ADM
  24. DOXORUBICIN [Suspect]
     Active Substance: DOXORUBICIN
     Indication: Diffuse large B-cell lymphoma
     Dosage: UNK
     Route: 065
  25. DOXORUBICIN [Suspect]
     Active Substance: DOXORUBICIN
     Dosage: AFTER 6 CYCLES OF CHOP (CYCLOPHOSPHAMIDE, VINCRISTINE, DOXORUBICIN AND PREDNISONE) THERAPY AND 8 ADM
  26. DOXORUBICIN [Suspect]
     Active Substance: DOXORUBICIN
     Dosage: AFTER 6 CYCLES OF CHOP (CYCLOPHOSPHAMIDE, VINCRISTINE, DOXORUBICIN AND PREDNISONE) THERAPY AND 8 ADM
  27. DOXORUBICIN [Suspect]
     Active Substance: DOXORUBICIN
     Dosage: AFTER 6 CYCLES OF CHOP (CYCLOPHOSPHAMIDE, VINCRISTINE, DOXORUBICIN AND PREDNISONE) THERAPY AND 8 ADM
  28. DOXORUBICIN [Suspect]
     Active Substance: DOXORUBICIN
     Dosage: AFTER 6 CYCLES OF CHOP (CYCLOPHOSPHAMIDE, VINCRISTINE, DOXORUBICIN AND PREDNISONE) THERAPY AND 8 ADM
  29. DOXORUBICIN [Suspect]
     Active Substance: DOXORUBICIN
     Dosage: AFTER 6 CYCLES OF CHOP (CYCLOPHOSPHAMIDE, VINCRISTINE, DOXORUBICIN AND PREDNISONE) THERAPY AND 8 ADM
  30. DOXORUBICIN [Suspect]
     Active Substance: DOXORUBICIN
     Dosage: AFTER 6 CYCLES OF CHOP (CYCLOPHOSPHAMIDE, VINCRISTINE, DOXORUBICIN AND PREDNISONE) THERAPY AND 8 ADM
  31. PREDNISONE [Suspect]
     Active Substance: PREDNISONE
     Indication: Diffuse large B-cell lymphoma
     Dosage: UNK
     Route: 065
  32. PREDNISONE [Suspect]
     Active Substance: PREDNISONE
     Dosage: AFTER 6 CYCLES OF CHOP (CYCLOPHOSPHAMIDE, VINCRISTINE, DOXORUBICIN AND PREDNISONE) THERAPY AND 8 ADM
  33. PREDNISONE [Suspect]
     Active Substance: PREDNISONE
     Dosage: AFTER 6 CYCLES OF CHOP (CYCLOPHOSPHAMIDE, VINCRISTINE, DOXORUBICIN AND PREDNISONE) THERAPY AND 8 ADM
  34. PREDNISONE [Suspect]
     Active Substance: PREDNISONE
     Dosage: AFTER 6 CYCLES OF CHOP (CYCLOPHOSPHAMIDE, VINCRISTINE, DOXORUBICIN AND PREDNISONE) THERAPY AND 8 ADM
  35. PREDNISONE [Suspect]
     Active Substance: PREDNISONE
     Dosage: AFTER 6 CYCLES OF CHOP (CYCLOPHOSPHAMIDE, VINCRISTINE, DOXORUBICIN AND PREDNISONE) THERAPY AND 8 ADM
  36. PREDNISONE [Suspect]
     Active Substance: PREDNISONE
     Dosage: AFTER 6 CYCLES OF CHOP (CYCLOPHOSPHAMIDE, VINCRISTINE, DOXORUBICIN AND PREDNISONE) THERAPY AND 8 ADM
  37. PREDNISONE [Suspect]
     Active Substance: PREDNISONE
     Dosage: AFTER 6 CYCLES OF CHOP (CYCLOPHOSPHAMIDE, VINCRISTINE, DOXORUBICIN AND PREDNISONE) THERAPY AND 8 ADM
  38. ETOPOSIDE [Suspect]
     Active Substance: ETOPOSIDE
     Indication: B-cell lymphoma
     Dosage: UNK
     Route: 065
  39. ETOPOSIDE [Suspect]
     Active Substance: ETOPOSIDE
     Indication: Chemotherapy
  40. IFOSFAMIDE [Suspect]
     Active Substance: IFOSFAMIDE
     Indication: B-cell lymphoma
     Dosage: UNK
     Route: 065
  41. IFOSFAMIDE [Suspect]
     Active Substance: IFOSFAMIDE
     Indication: Chemotherapy
  42. VINORELBINE [Suspect]
     Active Substance: VINORELBINE TARTRATE
     Indication: B-cell lymphoma
     Dosage: UNK
     Route: 065
  43. VINORELBINE [Suspect]
     Active Substance: VINORELBINE TARTRATE
     Indication: Chemotherapy
  44. DEXAMETHASONE [Suspect]
     Active Substance: DEXAMETHASONE
     Indication: Nervous system disorder prophylaxis
     Dosage: UNK
     Route: 065
  45. DEXAMETHASONE [Suspect]
     Active Substance: DEXAMETHASONE
     Indication: B-cell lymphoma
  46. CYTARABINE [Suspect]
     Active Substance: CYTARABINE
     Indication: B-cell lymphoma
     Dosage: UNK
     Route: 065
  47. CISPLATIN [Suspect]
     Active Substance: CISPLATIN
     Indication: B-cell lymphoma
     Route: 065
  48. METHOTREXATE [Suspect]
     Active Substance: METHOTREXATE
     Indication: Nervous system disorder prophylaxis
     Route: 065
  49. MELPHALAN [Suspect]
     Active Substance: MELPHALAN
     Indication: B-cell lymphoma
     Dosage: UNK
     Route: 065
  50. CARMUSTINE [Suspect]
     Active Substance: CARMUSTINE
     Indication: B-cell lymphoma
     Dosage: UNK
     Route: 065

REACTIONS (5)
  - Thrombocytopenia [Recovered/Resolved]
  - Cold type haemolytic anaemia [Recovered/Resolved]
  - Non-Hodgkin^s lymphoma recurrent [Recovered/Resolved]
  - Staphylococcal infection [Recovered/Resolved]
  - Disease progression [Recovered/Resolved]

NARRATIVE: CASE EVENT DATE: 20180301
